FAERS Safety Report 12918894 (Version 15)
Quarter: 2017Q4

REPORT INFORMATION
  Report Type: Report from Study
  Country: DE (occurrence: DE)
  Receive Date: 20161108
  Receipt Date: 20171027
  Transmission Date: 20180320
  Serious: Yes (Hospitalization)
  Sender: FDA-Public Use
  Company Number: PHHO2016DE015957

PATIENT
  Age: 36 Year
  Sex: Female
  Weight: 80.5 kg

DRUGS (3)
  1. SPIRIVA [Concomitant]
     Active Substance: TIOTROPIUM BROMIDE MONOHYDRATE
     Indication: ASTHMA
     Dosage: 2.5 UG, BID
     Route: 055
     Dates: start: 20170130
  2. PLACEBO [Suspect]
     Active Substance: UNSPECIFIED INGREDIENT
     Indication: PYREXIA
     Dosage: UNK
     Route: 058
     Dates: start: 20150306
  3. AMOXICLAV [Suspect]
     Active Substance: AMOXICILLIN\CLAVULANIC ACID
     Indication: PRODUCT USED FOR UNKNOWN INDICATION
     Dosage: 500 MG, BID
     Route: 048
     Dates: start: 20141021

REACTIONS (4)
  - Pneumonia [Recovered/Resolved]
  - Drug hypersensitivity [Recovered/Resolved]
  - Bronchitis [Recovered/Resolved]
  - Pneumonia [Not Recovered/Not Resolved]

NARRATIVE: CASE EVENT DATE: 20161024
